FAERS Safety Report 17070632 (Version 1)
Quarter: 2019Q4

REPORT INFORMATION
  Report Type: Spontaneous
  Country: US (occurrence: US)
  Receive Date: 20191125
  Receipt Date: 20191125
  Transmission Date: 20200122
  Serious: Yes (Other)
  Sender: FDA-Public Use
  Company Number: US-PFIZER INC-2019503946

PATIENT
  Age: 77 Year
  Sex: Male

DRUGS (1)
  1. TAFAMIDIS [Suspect]
     Active Substance: TAFAMIDIS MEGLUMINE
     Indication: AMYLOIDOSIS
     Dosage: 20 MG, UNK

REACTIONS (13)
  - Coronary artery occlusion [Unknown]
  - Negative thoughts [Unknown]
  - Pain [Unknown]
  - Poor quality sleep [Unknown]
  - Decreased interest [Unknown]
  - Chest pain [Unknown]
  - Drug ineffective [Unknown]
  - Dyspnoea [Unknown]
  - Cough [Unknown]
  - Hypoaesthesia [Unknown]
  - Cerebral palsy [Not Recovered/Not Resolved]
  - Asthenia [Unknown]
  - Fatigue [Unknown]
